FAERS Safety Report 25067998 (Version 1)
Quarter: 2025Q1

REPORT INFORMATION
  Report Type: Spontaneous
  Country: US (occurrence: None)
  Receive Date: 20250311
  Receipt Date: 20250311
  Transmission Date: 20250408
  Serious: Yes (Other)
  Sender: FDA-CTU
  Company Number: None

PATIENT
  Age: 60 Year
  Sex: Male
  Weight: 78.47 kg

DRUGS (4)
  1. PRUCALOPRIDE [Suspect]
     Active Substance: PRUCALOPRIDE
     Indication: Constipation
     Dosage: 2 MG DAILLY ORAL ?
     Route: 048
     Dates: start: 20250306, end: 20250306
  2. VITAMIN D NOS [Suspect]
     Active Substance: CHOLECALCIFEROL\ERGOCALCIFEROL
  3. COLACE [Suspect]
     Active Substance: DOCUSATE SODIUM
  4. FAMOTIDINE [Concomitant]
     Active Substance: FAMOTIDINE

REACTIONS (5)
  - Headache [None]
  - Dizziness [None]
  - Blood pressure decreased [None]
  - Speech disorder [None]
  - Mental status changes [None]

NARRATIVE: CASE EVENT DATE: 20250306
